FAERS Safety Report 7079223-1 (Version None)
Quarter: 2010Q4

REPORT INFORMATION
  Report Type: 
  Country: None (occurrence: None)
  Receive Date: 20101102
  Receipt Date: 20101022
  Transmission Date: 20110411
  Serious: Yes (Hospitalization)
  Sender: FDA-Public Use
  Company Number: BR-US-EMD SERONO, INC.-7024456

PATIENT
  Sex: Female

DRUGS (5)
  1. REBIF [Suspect]
     Indication: PRODUCT USED FOR UNKNOWN INDICATION
     Route: 058
     Dates: start: 20080125
  2. OMEPRAZOLE [Concomitant]
  3. PRIMID [Concomitant]
  4. VENLAFAXINE [Concomitant]
  5. NAPROXEN [Concomitant]

REACTIONS (3)
  - ATAXIA [None]
  - BALANCE DISORDER [None]
  - CENTRAL NERVOUS SYSTEM LESION [None]
